FAERS Safety Report 12309005 (Version 1)
Quarter: 2016Q2

REPORT INFORMATION
  Report Type: Spontaneous
  Country: IL (occurrence: None)
  Receive Date: 20160426
  Receipt Date: 20160426
  Transmission Date: 20160815
  Serious: Yes (Other)
  Sender: FDA-Public Use
  Company Number: None

PATIENT
  Age: 68 Year
  Sex: Female
  Weight: 90 kg

DRUGS (7)
  1. BISOPROLOL [Concomitant]
     Active Substance: BISOPROLOL
  2. PROPAFENONE, 150MG ABBOTT [Suspect]
     Active Substance: PROPAFENONE
     Indication: ATRIAL FIBRILLATION
     Route: 048
  3. FAMOTIDINE. [Concomitant]
     Active Substance: FAMOTIDINE
  4. OTC OPTIMAX2 [Concomitant]
  5. WARFARIN [Concomitant]
     Active Substance: WARFARIN
  6. SIMVASTATIN. [Concomitant]
     Active Substance: SIMVASTATIN
  7. AROMASINE [Concomitant]
     Active Substance: EXEMESTANE

REACTIONS (3)
  - Atrial fibrillation [None]
  - Product formulation issue [None]
  - Blood thyroid stimulating hormone increased [None]

NARRATIVE: CASE EVENT DATE: 20160330
